FAERS Safety Report 23821289 (Version 4)
Quarter: 2025Q1

REPORT INFORMATION
  Report Type: Spontaneous
  Country: US (occurrence: US)
  Receive Date: 20240506
  Receipt Date: 20250307
  Transmission Date: 20250409
  Serious: No
  Sender: PFIZER
  Company Number: US-PFIZER INC-PV202400044856

PATIENT
  Age: 69 Year
  Sex: Female
  Weight: 69.85 kg

DRUGS (5)
  1. XELJANZ XR [Suspect]
     Active Substance: TOFACITINIB CITRATE
     Indication: Rheumatoid arthritis
  2. PANTOPRAZOLE [Concomitant]
     Active Substance: PANTOPRAZOLE
  3. HERBALS\TURMERIC [Concomitant]
     Active Substance: HERBALS\TURMERIC
  4. BIOTIN [Concomitant]
     Active Substance: BIOTIN
  5. NORCO [Concomitant]
     Active Substance: ACETAMINOPHEN\HYDROCODONE BITARTRATE

REACTIONS (5)
  - Alopecia [Unknown]
  - Headache [Recovering/Resolving]
  - Muscle spasms [Unknown]
  - Paraesthesia [Unknown]
  - Head discomfort [Unknown]
